FAERS Safety Report 22349438 (Version 1)
Quarter: 2023Q2

REPORT INFORMATION
  Report Type: Spontaneous
  Country: US (occurrence: US)
  Receive Date: 20230522
  Receipt Date: 20230522
  Transmission Date: 20230722
  Serious: No
  Sender: FDA-Public Use
  Company Number: US-PURACAP-US-2023EPCSPO00820

PATIENT
  Sex: Female

DRUGS (6)
  1. IBUPROFEN [Suspect]
     Active Substance: IBUPROFEN
     Indication: Product used for unknown indication
     Route: 065
  2. IBUPROFEN [Suspect]
     Active Substance: IBUPROFEN
  3. IBUPROFEN [Suspect]
     Active Substance: IBUPROFEN
  4. IBUPROFEN [Suspect]
     Active Substance: IBUPROFEN
  5. IBUPROFEN [Suspect]
     Active Substance: IBUPROFEN
  6. IBUPROFEN [Suspect]
     Active Substance: IBUPROFEN

REACTIONS (3)
  - Oral discomfort [Unknown]
  - Product leakage [Unknown]
  - Poor quality product administered [Unknown]
